FAERS Safety Report 5580191-X (Version None)
Quarter: 2007Q4

REPORT INFORMATION
  Report Type: 
  Country: None (occurrence: None)
  Receive Date: 20071228
  Receipt Date: 20071219
  Transmission Date: 20080405
  Serious: Yes (Other)
  Sender: FDA-Public Use
  Company Number: 144-C5013-07121117

PATIENT
  Sex: Male

DRUGS (3)
  1. CC-5013 (LENALIDOMIDE) (CAPSULES) [Suspect]
     Indication: MYELODYSPLASTIC SYNDROME
     Dosage: 10 MG, EVERY OTHER DAY, ORAL
     Route: 048
     Dates: start: 20071118, end: 20071214
  2. NEUPOGEN [Concomitant]
  3. ARANESP [Concomitant]

REACTIONS (9)
  - CONDITION AGGRAVATED [None]
  - CONJUNCTIVITIS [None]
  - EYE PRURITUS [None]
  - HAEMOGLOBIN DECREASED [None]
  - LACRIMATION INCREASED [None]
  - NEUTROPHIL COUNT DECREASED [None]
  - PERIORBITAL OEDEMA [None]
  - PLATELET COUNT DECREASED [None]
  - URTICARIA [None]
